FAERS Safety Report 20900589 (Version 1)
Quarter: 2022Q2

REPORT INFORMATION
  Report Type: Spontaneous
  Country: US (occurrence: None)
  Receive Date: 20220531
  Receipt Date: 20220531
  Transmission Date: 20220720
  Serious: No
  Sender: FDA-Public Use
  Company Number: None

PATIENT
  Age: 36 Year
  Sex: Female

DRUGS (1)
  1. TAFINLAR [Suspect]
     Active Substance: DABRAFENIB MESYLATE
     Indication: Product used for unknown indication
     Dosage: OTHER QUANTITY : 2 TABLETS;?FREQUENCY : TWICE A DAY;?
     Route: 048
     Dates: start: 202108

REACTIONS (5)
  - Urinary tract infection [None]
  - Sepsis [None]
  - Dehydration [None]
  - Pyrexia [None]
  - Therapy interrupted [None]

NARRATIVE: CASE EVENT DATE: 20220501
